FAERS Safety Report 10120497 (Version 2)
Quarter: 2014Q4

REPORT INFORMATION
  Report Type: Other
  Country: US (occurrence: US)
  Receive Date: 20140425
  Receipt Date: 20141230
  Transmission Date: 20150528
  Serious: Yes (Hospitalization, Other)
  Sender: FDA-Public Use
  Company Number: US-GSKPPD-2014GSK009388

PATIENT
  Age: 74 Year
  Sex: Male

DRUGS (7)
  1. PRAVACHOL [Concomitant]
     Active Substance: PRAVASTATIN SODIUM
  2. COREG [Concomitant]
     Active Substance: CARVEDILOL
     Route: 048
  3. AVANDIA [Suspect]
     Active Substance: ROSIGLITAZONE MALEATE
     Indication: DIABETES MELLITUS
     Dosage: DATES OF AVANDIA USE COULD NOT BE CONFIRMED IN RECORDS REVIEWED.
     Route: 048
  4. ALTACE [Concomitant]
     Active Substance: RAMIPRIL
     Route: 048
  5. LASIX [Concomitant]
     Active Substance: FUROSEMIDE
     Route: 048
  6. AMIODARONE [Concomitant]
     Active Substance: AMIODARONE
  7. ASPIRIN. [Concomitant]
     Active Substance: ASPIRIN

REACTIONS (1)
  - Vascular graft [Recovered/Resolved]

NARRATIVE: CASE EVENT DATE: 20040826
